FAERS Safety Report 14943838 (Version 2)
Quarter: 2018Q2

REPORT INFORMATION
  Report Type: Spontaneous
  Country: NL (occurrence: NL)
  Receive Date: 20180528
  Receipt Date: 20180612
  Transmission Date: 20180711
  Serious: Yes (Other)
  Sender: FDA-Public Use
  Company Number: NL-TEVA-2018-NL-898259

PATIENT
  Age: 23 Year
  Sex: Male
  Weight: 70 kg

DRUGS (1)
  1. RISPERIDONE. [Suspect]
     Active Substance: RISPERIDONE
     Indication: SCHIZOPHRENIA
     Dosage: 1 DOSAGE FORMS DAILY;
     Dates: start: 2007

REACTIONS (13)
  - Skin odour abnormal [Recovered/Resolved]
  - Muscular weakness [Recovered/Resolved]
  - Loss of dreaming [Recovered/Resolved]
  - Product taste abnormal [Recovered/Resolved]
  - Emotional disorder [Recovered/Resolved]
  - Anxiety [Recovered/Resolved]
  - Flatulence [Recovered/Resolved]
  - Angioedema [Recovered/Resolved]
  - Agitation [Recovered/Resolved]
  - Head discomfort [Recovered/Resolved]
  - Asthenia [Recovered/Resolved]
  - Sexual dysfunction [Recovered/Resolved]
  - Libido disorder [Recovered/Resolved]

NARRATIVE: CASE EVENT DATE: 20070103
